FAERS Safety Report 8547850-8 (Version None)
Quarter: 2012Q3

REPORT INFORMATION
  Report Type: 
  Country: None (occurrence: None)
  Receive Date: 20120727
  Receipt Date: 20120716
  Transmission Date: 20120928
  Serious: No
  Sender: FDA-Public Use
  Company Number: US-ASTRAZENECA-2012SE39677

PATIENT
  Sex: Female
  Weight: 97.1 kg

DRUGS (4)
  1. ZOMIG [Suspect]
     Indication: MIGRAINE
     Route: 048
     Dates: start: 20100101, end: 20120601
  2. ZOMIG [Suspect]
     Route: 048
     Dates: start: 20120613
  3. THYROID MEDICATION [Concomitant]
  4. ADVIL [Concomitant]

REACTIONS (9)
  - PAIN [None]
  - BRONCHITIS [None]
  - HYPERVIGILANCE [None]
  - ADVERSE EVENT [None]
  - NAUSEA [None]
  - ASTHMA [None]
  - DRUG INEFFECTIVE [None]
  - PRODUCT TASTE ABNORMAL [None]
  - DRY MOUTH [None]
